FAERS Safety Report 17705985 (Version 1)
Quarter: 2020Q2

REPORT INFORMATION
  Report Type: Spontaneous
  Country: US (occurrence: US)
  Receive Date: 20200424
  Receipt Date: 20200424
  Transmission Date: 20200714
  Serious: Yes (Other)
  Sender: FDA-Public Use
  Company Number: US-PFIZER INC-2020157896

PATIENT
  Age: 31 Year
  Sex: Female

DRUGS (21)
  1. LIDOCAINE HCL [Suspect]
     Active Substance: LIDOCAINE HYDROCHLORIDE
     Indication: VENTRICULAR ARRHYTHMIA
     Dosage: 5.5 G, 20 HOURS (4.6 MG/MIN)
  2. LIDOCAINE HCL [Suspect]
     Active Substance: LIDOCAINE HYDROCHLORIDE
     Dosage: 50 MG (EVERY 12 MINUTES, WAS CONTINUED DURING THE SECOND HOUR)
     Route: 042
  3. DIPHENYLHYDANTOIN SODIUM [Concomitant]
     Indication: VENTRICULAR TACHYCARDIA
     Dosage: 500 MG NEXT 1 1/2 HR (37-38 1/2)/600 MG, TOTAL
     Route: 042
  4. LIDOCAINE HCL [Suspect]
     Active Substance: LIDOCAINE HYDROCHLORIDE
     Dosage: 100 MG (INITIALLY)
     Route: 042
  5. HYDROCORTISONE ACETATE. [Concomitant]
     Active Substance: HYDROCORTISONE ACETATE
     Indication: VENTRICULAR TACHYCARDIA
     Dosage: 100 MG NEXT 30 MIN (36 1/2-37)
     Route: 042
  6. QUINIDINE SULFATE. [Concomitant]
     Active Substance: QUINIDINE SULFATE
     Indication: VENTRICULAR TACHYCARDIA
     Dosage: 400 MG (FIRST 19 HR (0-19HR)/1,600 MG TOTAL)
     Route: 048
  7. OUABAIN. [Concomitant]
     Active Substance: OUABAIN
     Indication: VENTRICULAR TACHYCARDIA
     Dosage: 0.250 MG (NEXT 1 HR (35 1/2-36 1/2))
  8. LIDOCAINE HCL [Suspect]
     Active Substance: LIDOCAINE HYDROCHLORIDE
     Dosage: 350 MG (TOTAL, ADMINISTERED INTRAVENOUSLY DURING THE NEXT HOUR)
     Route: 042
  9. ATROPINE SULFATE. [Concomitant]
     Active Substance: ATROPINE SULFATE
     Indication: PREOPERATIVE CARE
     Dosage: UNK
  10. PROCAINAMIDE HCL [Concomitant]
     Active Substance: PROCAINAMIDE HYDROCHLORIDE
     Indication: VENTRICULAR TACHYCARDIA
     Dosage: 5150 MG (NEXT 15 HR (19-34))/9,150 MG, TOTAL
     Route: 042
  11. LIDOCAINE HCL [Suspect]
     Active Substance: LIDOCAINE HYDROCHLORIDE
     Dosage: 100 MG (NEXT 1 HR, 34 1/2 -35 1/2)
     Route: 042
  12. DEMEROL [Concomitant]
     Active Substance: MEPERIDINE HYDROCHLORIDE
     Indication: PREOPERATIVE CARE
     Dosage: UNK
  13. LIDOCAINE HCL [Suspect]
     Active Substance: LIDOCAINE HYDROCHLORIDE
     Dosage: 20 MG (EVERY FIVE MINUTES FOR A TOTAL OF 240 MG/HR, WAS CONTINUED FOR THE NEXT 18 HOURS)
     Route: 042
  14. MAGNESIUM SULFATE. [Concomitant]
     Active Substance: MAGNESIUM SULFATE
     Indication: VENTRICULAR TACHYCARDIA
     Dosage: UNK, (18 CC, IV)
     Route: 042
  15. QUINIDINE SULFATE. [Concomitant]
     Active Substance: QUINIDINE SULFATE
     Indication: VENTRICULAR TACHYCARDIA
     Dosage: 1200 MG(FIRST 19 HR (0-19HR)/1,600 MG TOTAL
     Route: 042
  16. LIDOCAINE HCL [Suspect]
     Active Substance: LIDOCAINE HYDROCHLORIDE
     Dosage: 6657 MG (NEXT 24 HR, 39-62)
     Route: 042
  17. LIDOCAINE HCL [Suspect]
     Active Substance: LIDOCAINE HYDROCHLORIDE
     Dosage: 50 MG (EVERY TEN MINUTES)
     Route: 042
  18. LIDOCAINE HCL [Suspect]
     Active Substance: LIDOCAINE HYDROCHLORIDE
     Dosage: 20 MG (DOSAGE WAS INCREASED TO 20 MG EVERY THREE MINUTES, RAPID INTRAVENOUS INJECTION TOTALING 400 M
     Route: 042
  19. MAGNESIUM SULFATE. [Concomitant]
     Active Substance: MAGNESIUM SULFATE
     Dosage: UNK (18 CC /NEXT 30 MIN)
     Route: 042
  20. PROCAINAMIDE HCL [Concomitant]
     Active Substance: PROCAINAMIDE HYDROCHLORIDE
     Indication: VENTRICULAR TACHYCARDIA
     Dosage: 4000 MG NEXT 15 HR (19-34)/9,150 MG, TOTAL
     Route: 048
  21. DIPHENYLHYDANTOIN SODIUM [Concomitant]
     Dosage: 100 MG NEXT 1 1/2 HR (37-38 1/2)/600 MG, TOTAL
     Route: 030

REACTIONS (4)
  - Oedema peripheral [Unknown]
  - Somnolence [Unknown]
  - Agitation [Recovered/Resolved]
  - Tachypnoea [Recovered/Resolved]
